FAERS Safety Report 10148932 (Version 2)
Quarter: 2014Q3

REPORT INFORMATION
  Report Type: Spontaneous
  Country: US (occurrence: US)
  Receive Date: 20140502
  Receipt Date: 20140704
  Transmission Date: 20150326
  Serious: Yes (Death)
  Sender: FDA-Public Use
  Company Number: US-BIOGENIDEC-2014BI040609

PATIENT
  Age: 65 Year
  Sex: Female

DRUGS (24)
  1. AVONEX [Suspect]
     Active Substance: INTERFERON BETA-1A
     Indication: MULTIPLE SCLEROSIS
     Route: 030
     Dates: start: 2009
  2. FLUTICASONE PROPIONATE. [Concomitant]
     Active Substance: FLUTICASONE PROPIONATE
  3. LISINOPRIL. [Concomitant]
     Active Substance: LISINOPRIL
  4. NITROFURANTOIN (MACROCRYSTALS) [Concomitant]
     Active Substance: NITROFURANTOIN
  5. SINGULAIR [Concomitant]
     Active Substance: MONTELUKAST SODIUM
  6. AVONEX [Suspect]
     Active Substance: INTERFERON BETA-1A
     Indication: MULTIPLE SCLEROSIS
     Route: 030
     Dates: start: 20100114, end: 20140418
  7. MECLIZINE HCL [Concomitant]
     Active Substance: MECLIZINE HYDROCHLORIDE
  8. OXYCODONE HCL [Concomitant]
     Active Substance: OXYCODONE HYDROCHLORIDE
  9. SIMVASTATIN. [Concomitant]
     Active Substance: SIMVASTATIN
  10. GLYBURIDE MICRONIZED [Concomitant]
  11. NORVASC [Concomitant]
     Active Substance: AMLODIPINE BESYLATE
  12. PERCOCET [Concomitant]
     Active Substance: ACETAMINOPHEN\OXYCODONE HYDROCHLORIDE
  13. VENLAFAXINE HCL [Concomitant]
     Active Substance: VENLAFAXINE HYDROCHLORIDE
  14. METFORMIN HCL [Concomitant]
     Active Substance: METFORMIN HYDROCHLORIDE
  15. VITAMIN B COMPLEX [Concomitant]
     Active Substance: CYANOCOBALAMIN\DEXPANTHENOL\NIACINAMIDE\PYRIDOXINE HYDROCHLORIDE\RIBOFLAVIN 5^-PHOSPHATE SODIUM\THIAMINE HYDROCHLORIDE\VITAMIN B COMPLEX
  16. ASTELIN [Concomitant]
     Active Substance: AZELASTINE HYDROCHLORIDE
  17. BACLOFEN. [Concomitant]
     Active Substance: BACLOFEN
  18. GABAPENTIN. [Concomitant]
     Active Substance: GABAPENTIN
  19. MELOXICAM. [Concomitant]
     Active Substance: MELOXICAM
  20. POTASSIUM ACETATE. [Concomitant]
     Active Substance: POTASSIUM ACETATE
  21. PREDNISONE. [Concomitant]
     Active Substance: PREDNISONE
  22. CETIRIZINE HCL CHILDRENS [Concomitant]
  23. FUROSEMIDE. [Concomitant]
     Active Substance: FUROSEMIDE
  24. SENNA LAXATIVE [Concomitant]
     Active Substance: SENNOSIDES\SENNOSIDES A AND B

REACTIONS (1)
  - Death [Fatal]

NARRATIVE: CASE EVENT DATE: 20140418
